FAERS Safety Report 19460530 (Version 3)
Quarter: 2021Q3

REPORT INFORMATION
  Report Type: Report from Study
  Country: None (occurrence: FI)
  Receive Date: 20210625
  Receipt Date: 20210708
  Transmission Date: 20211014
  Serious: Yes (Hospitalization, Other)
  Sender: FDA-Public Use
  Company Number: FI-ABBVIE-21K-055-3960038-00

PATIENT
  Age: 77 Year
  Sex: Male

DRUGS (7)
  1. FLORINEF ACETATE [Concomitant]
     Active Substance: FLUDROCORTISONE ACETATE
     Indication: BLOOD PRESSURE INCREASED
  2. VITAMIN B6 [Concomitant]
     Active Substance: PYRIDOXINE HYDROCHLORIDE
     Indication: PRODUCT USED FOR UNKNOWN INDICATION
  3. DUODOPA [Suspect]
     Active Substance: CARBIDOPA\LEVODOPA
     Dosage: DURING DAY 5.5 ML/H, DURING NIGHT 4.8 ML/H, ED 1.0 ML; 24 H TREATMENT
     Route: 050
     Dates: start: 2021
  4. RIVASTOR [Concomitant]
     Indication: PRODUCT USED FOR UNKNOWN INDICATION
     Dates: start: 2021
  5. SOMAC [Concomitant]
     Active Substance: PANTOPRAZOLE SODIUM
     Indication: PROPHYLAXIS
  6. DUODOPA [Suspect]
     Active Substance: CARBIDOPA\LEVODOPA
     Indication: PARKINSON^S DISEASE
     Dosage: DURING NIGHT 4.8 ML/H, 24 H TREATMENT
     Route: 050
     Dates: start: 201708, end: 2021
  7. DUODOPA [Suspect]
     Active Substance: CARBIDOPA\LEVODOPA
     Dosage: DURING NIGHT 5.0 ML/H, 24 H TREATMENT
     Route: 050
     Dates: start: 2021, end: 2021

REACTIONS (11)
  - Tremor [Recovering/Resolving]
  - Device dislocation [Recovered/Resolved]
  - Device use issue [Recovered/Resolved]
  - Urinary tract infection [Recovered/Resolved]
  - Musculoskeletal stiffness [Recovered/Resolved]
  - Stoma site infection [Recovered/Resolved]
  - Overdose [Recovered/Resolved]
  - Confusional state [Recovered/Resolved]
  - Stoma site inflammation [Recovered/Resolved]
  - Klebsiella infection [Recovered/Resolved]
  - Malaise [Recovering/Resolving]

NARRATIVE: CASE EVENT DATE: 2019
